FAERS Safety Report 11691934 (Version 1)
Quarter: 2015Q4

REPORT INFORMATION
  Report Type: Spontaneous
  Country: US (occurrence: US)
  Receive Date: 20151103
  Receipt Date: 20151103
  Transmission Date: 20160304
  Serious: No
  Sender: FDA-Public Use
  Company Number: US-ASTRAZENECA-2015SF03911

PATIENT

DRUGS (1)
  1. FASLODEX [Suspect]
     Active Substance: FULVESTRANT
     Route: 030

REACTIONS (2)
  - Alopecia [Unknown]
  - Injection site pain [Unknown]
